FAERS Safety Report 10311551 (Version 1)
Quarter: 2014Q3

REPORT INFORMATION
  Report Type: Spontaneous
  Country: BR (occurrence: BR)
  Receive Date: 20140717
  Receipt Date: 20140717
  Transmission Date: 20150326
  Serious: Yes (Other)
  Sender: FDA-Public Use
  Company Number: BR-GLAXOSMITHKLINE-A1081328A

PATIENT
  Sex: Male
  Weight: 115 kg

DRUGS (2)
  1. OLMETEC [Concomitant]
     Active Substance: OLMESARTAN MEDOXOMIL
  2. SERETIDE [Suspect]
     Active Substance: FLUTICASONE FUROATE\SALMETEROL XINAFOATE
     Indication: ASTHMA
     Dosage: 1PUFF TWICE PER DAY
     Route: 065
     Dates: start: 2004

REACTIONS (1)
  - Dependence [Recovered/Resolved]

NARRATIVE: CASE EVENT DATE: 2009
